FAERS Safety Report 24039196 (Version 2)
Quarter: 2024Q3

REPORT INFORMATION
  Report Type: Report from Study
  Country: CA (occurrence: CA)
  Receive Date: 20240702
  Receipt Date: 20240708
  Transmission Date: 20241016
  Serious: Yes (Hospitalization)
  Sender: ABBVIE
  Company Number: CA-ABBVIE-5820166

PATIENT
  Sex: Female

DRUGS (1)
  1. SKYRIZI [Suspect]
     Active Substance: RISANKIZUMAB-RZAA
     Indication: Crohn^s disease
     Route: 058
     Dates: start: 20230128

REACTIONS (6)
  - Rib fracture [Unknown]
  - Upper limb fracture [Unknown]
  - Shoulder fracture [Unknown]
  - Clavicle fracture [Unknown]
  - Balance disorder [Unknown]
  - Therapeutic product effect incomplete [Unknown]
